FAERS Safety Report 16624780 (Version 2)
Quarter: 2019Q3

REPORT INFORMATION
  Report Type: Report from Study
  Country: CA (occurrence: CA)
  Receive Date: 20190724
  Receipt Date: 20190810
  Transmission Date: 20191004
  Serious: Yes (Other)
  Sender: FDA-Public Use
  Company Number: CA-ROCHE-1625951

PATIENT
  Age: 57 Year
  Sex: Male
  Weight: 130 kg

DRUGS (8)
  1. ACTEMRA [Suspect]
     Active Substance: TOCILIZUMAB
     Indication: RHEUMATOID ARTHRITIS
     Route: 058
     Dates: start: 20150727
  2. MORPHINE [Concomitant]
     Active Substance: MORPHINE
  3. PIROXICAM. [Concomitant]
     Active Substance: PIROXICAM
  4. VITAMIN D [VITAMIN D NOS] [Concomitant]
     Active Substance: VITAMIN D NOS
  5. PREDNISONE. [Suspect]
     Active Substance: PREDNISONE
     Indication: PRODUCT USED FOR UNKNOWN INDICATION
     Route: 065
  6. SULFASALAZINE. [Concomitant]
     Active Substance: SULFASALAZINE
  7. VITAMIN B12 [VITAMIN B12 NOS] [Concomitant]
     Active Substance: CYANOCOBALAMIN
  8. ARAVA [Concomitant]
     Active Substance: LEFLUNOMIDE

REACTIONS (22)
  - Pain in extremity [Recovered/Resolved]
  - Respiratory rate increased [Unknown]
  - Weight increased [Recovering/Resolving]
  - Malaise [Unknown]
  - Blood pressure systolic increased [Unknown]
  - Uveitis [Unknown]
  - Peripheral swelling [Not Recovered/Not Resolved]
  - Cataract [Unknown]
  - Eye disorder [Unknown]
  - Blood pressure diastolic increased [Unknown]
  - Arthralgia [Recovered/Resolved]
  - Rheumatoid arthritis [Recovering/Resolving]
  - Weight decreased [Unknown]
  - Contusion [Not Recovered/Not Resolved]
  - Fatigue [Not Recovered/Not Resolved]
  - Blood pressure systolic increased [Unknown]
  - Blood pressure increased [Unknown]
  - Blood pressure increased [Recovered/Resolved]
  - Drug ineffective [Unknown]
  - Headache [Not Recovered/Not Resolved]
  - Hypertension [Not Recovered/Not Resolved]
  - Food poisoning [Not Recovered/Not Resolved]

NARRATIVE: CASE EVENT DATE: 20150824
